FAERS Safety Report 14681301 (Version 2)
Quarter: 2018Q1

REPORT INFORMATION
  Report Type: Spontaneous
  Country: US (occurrence: US)
  Receive Date: 20180326
  Receipt Date: 20180330
  Transmission Date: 20180509
  Serious: Yes (Other)
  Sender: FDA-Public Use
  Company Number: US-PFIZER INC-2018120483

PATIENT
  Age: 32 Year
  Sex: Male

DRUGS (7)
  1. LEVETIRACETAM. [Suspect]
     Active Substance: LEVETIRACETAM
     Indication: EPILEPSY
     Dosage: 1000 MG, 2X/DAY
     Dates: start: 2009
  2. ATIVAN [Concomitant]
     Active Substance: LORAZEPAM
     Dosage: UNK, 2X/DAY (1/2 TABLET)
  3. ATIVAN [Concomitant]
     Active Substance: LORAZEPAM
     Indication: FEELING ABNORMAL
     Dosage: 2 MG, AS NEEDED (4 TIMES A DAY)
     Route: 048
     Dates: start: 2015
  4. PROPANOLOL HYDROCHLORIDE [Concomitant]
     Active Substance: PROPRANOLOL HYDROCHLORIDE
     Indication: BLOOD PRESSURE ABNORMAL
     Dosage: 60 MG, DAILY (ONE TABLET IN THE MORNING AND TWO TABLETS IN THE EVENING)
     Dates: start: 2006
  5. ATIVAN [Concomitant]
     Active Substance: LORAZEPAM
     Dosage: UNK, (6 MG TO AS MUCH AS 8MG)
  6. KEPPRA [Suspect]
     Active Substance: LEVETIRACETAM
     Dosage: UNK
  7. CLONIDINE. [Concomitant]
     Active Substance: CLONIDINE
     Indication: BLOOD PRESSURE ABNORMAL
     Dosage: 0.1 MG, 2X/DAY
     Dates: start: 2006

REACTIONS (30)
  - Coordination abnormal [Unknown]
  - Aversion [Unknown]
  - Road traffic accident [Unknown]
  - Blood sodium decreased [Unknown]
  - Personality change [Not Recovered/Not Resolved]
  - Irritability [Not Recovered/Not Resolved]
  - Polyuria [Unknown]
  - Urine output increased [Unknown]
  - Serotonin syndrome [Unknown]
  - Visual impairment [Unknown]
  - Anxiety [Unknown]
  - Autonomic nervous system imbalance [Unknown]
  - Blood testosterone abnormal [Unknown]
  - Intentional self-injury [Unknown]
  - Condition aggravated [Not Recovered/Not Resolved]
  - Delusion [Unknown]
  - Dark circles under eyes [Unknown]
  - Temporal lobe epilepsy [Unknown]
  - Illusion [Not Recovered/Not Resolved]
  - Hypermobility syndrome [Unknown]
  - Dyskinesia [Unknown]
  - Agitation [Not Recovered/Not Resolved]
  - Asthenia [Not Recovered/Not Resolved]
  - Musculoskeletal discomfort [Unknown]
  - Psychotic disorder [Unknown]
  - Dyspnoea [Unknown]
  - Language disorder [Unknown]
  - Post-traumatic stress disorder [Unknown]
  - Anger [Not Recovered/Not Resolved]
  - Mood altered [Not Recovered/Not Resolved]

NARRATIVE: CASE EVENT DATE: 2016
